FAERS Safety Report 24329276 (Version 2)
Quarter: 2024Q4

REPORT INFORMATION
  Report Type: Report from Study
  Country: CH (occurrence: CH)
  Receive Date: 20240917
  Receipt Date: 20241111
  Transmission Date: 20250114
  Serious: No
  Sender: TRAVERE THERAPEUTICS
  Company Number: TRAVERE

PATIENT
  Age: 47 Year
  Sex: Female
  Weight: 63 kg

DRUGS (4)
  1. FILSPARI [Suspect]
     Active Substance: SPARSENTAN
     Indication: IgA nephropathy
     Dates: end: 20231222
  2. FILSPARI [Suspect]
     Active Substance: SPARSENTAN
     Dosage: RE-STARTED WITH REDUCED DOSE
  3. FILSPARI [Suspect]
     Active Substance: SPARSENTAN
     Dosage: INCREASED DOSE AFTER 2 WEEKS
  4. RAMIPRIL [Concomitant]
     Active Substance: RAMIPRIL
     Indication: Hypertension
     Dosage: 5 MG X 2

REACTIONS (5)
  - Tinnitus [Unknown]
  - Hypotension [Recovered/Resolved]
  - Dizziness [Recovered/Resolved]
  - Fatigue [Recovered/Resolved]
  - Respiration abnormal [Recovered/Resolved]

NARRATIVE: CASE EVENT DATE: 20231201
